FAERS Safety Report 10286120 (Version 1)
Quarter: 2014Q3

REPORT INFORMATION
  Report Type: Spontaneous
  Country: US (occurrence: None)
  Receive Date: 20140703
  Receipt Date: 20140703
  Transmission Date: 20150326
  Serious: Yes (Hospitalization)
  Sender: FDA-Public Use
  Company Number: UNT-2014-002038

PATIENT
  Sex: Male

DRUGS (1)
  1. TYVASO [Suspect]
     Active Substance: TREPROSTINIL
     Indication: COR PULMONALE CHRONIC
     Route: 055
     Dates: start: 20140505, end: 20140529

REACTIONS (7)
  - Dyspnoea [None]
  - Respiratory distress [None]
  - Haemorrhage [None]
  - Fatigue [None]
  - Increased tendency to bruise [None]
  - Local swelling [None]
  - Abdominal distension [None]

NARRATIVE: CASE EVENT DATE: 201405
